FAERS Safety Report 6079349-5 (Version None)
Quarter: 2009Q1

REPORT INFORMATION
  Report Type: 
  Country: None (occurrence: None)
  Receive Date: 20090216
  Receipt Date: 20081209
  Transmission Date: 20090719
  Serious: Yes (Death)
  Sender: FDA-Public Use
  Company Number: US-WYE-H06526908

PATIENT
  Sex: Male
  Weight: 104.42 kg

DRUGS (4)
  1. PRISTIQ [Suspect]
     Indication: MAJOR DEPRESSION
     Route: 048
     Dates: start: 20080924
  2. TOPROL-XL [Concomitant]
     Dosage: UNKNOWN
  3. COUMADIN [Concomitant]
     Dosage: UNKNOWN
  4. QUETIAPINE FUMARATE [Concomitant]

REACTIONS (1)
  - COMPLETED SUICIDE [None]
